FAERS Safety Report 12417813 (Version 4)
Quarter: 2016Q3

REPORT INFORMATION
  Report Type: Spontaneous
  Country: US (occurrence: US)
  Receive Date: 20160530
  Receipt Date: 20160715
  Transmission Date: 20161109
  Serious: Yes (Hospitalization)
  Sender: FDA-Public Use
  Company Number: US-KADMON PHARMACEUTICALS, LLC-KAD201605-001937

PATIENT
  Age: 55 Year
  Sex: Female
  Weight: 60.77 kg

DRUGS (14)
  1. RIBASPHERE [Suspect]
     Active Substance: RIBAVIRIN
     Indication: HEPATITIS C
     Dosage: 200 MG THREE CAPSULES IN THE MORNING AND TWO IN THE EVENING; DAILY DOSE: 1000 MG
     Route: 048
     Dates: start: 20160317
  2. CYMBALTA [Concomitant]
     Active Substance: DULOXETINE HYDROCHLORIDE
  3. LEVOTHYROXINE. [Concomitant]
     Active Substance: LEVOTHYROXINE
     Indication: HYPOTHYROIDISM
  4. PLAQUANIL [Concomitant]
     Indication: OSTEOARTHRITIS
  5. PROMETHAZINE [Concomitant]
     Active Substance: PROMETHAZINE\PROMETHAZINE HYDROCHLORIDE
     Indication: NAUSEA
  6. PROVERA [Concomitant]
     Active Substance: MEDROXYPROGESTERONE ACETATE
  7. ESTRADIOL. [Concomitant]
     Active Substance: ESTRADIOL
  8. SOVALDI [Suspect]
     Active Substance: SOFOSBUVIR
     Indication: HEPATITIS C
     Route: 048
     Dates: start: 20160317
  9. PROTONIX [Concomitant]
     Active Substance: PANTOPRAZOLE SODIUM
     Indication: GASTROOESOPHAGEAL REFLUX DISEASE
  10. NICODERM CQ [Concomitant]
     Active Substance: NICOTINE
     Indication: NICOTINE DEPENDENCE
  11. LISINOPRIL+HCTZ [Concomitant]
     Indication: HYPERTENSION
  12. GABAPENTIN. [Concomitant]
     Active Substance: GABAPENTIN
     Indication: ARTHRALGIA
  13. PROMETHAZINE [Concomitant]
     Active Substance: PROMETHAZINE\PROMETHAZINE HYDROCHLORIDE
     Indication: VOMITING
  14. LACTULOSE. [Concomitant]
     Active Substance: LACTULOSE
     Indication: CONSTIPATION
     Route: 048

REACTIONS (3)
  - Colitis ischaemic [Recovered/Resolved]
  - Anaemia [Recovered/Resolved]
  - Haemorrhage [Recovered/Resolved]

NARRATIVE: CASE EVENT DATE: 20160420
